FAERS Safety Report 13698792 (Version 1)
Quarter: 2017Q2

REPORT INFORMATION
  Report Type: Spontaneous
  Country: US (occurrence: US)
  Receive Date: 20170627
  Receipt Date: 20170627
  Transmission Date: 20170830
  Serious: Yes (Life-Threatening, Hospitalization)
  Sender: FDA-Public Use
  Company Number: None

PATIENT
  Age: 50 Year
  Sex: Female
  Weight: 54 kg

DRUGS (1)
  1. KLONOPIN [Suspect]
     Active Substance: CLONAZEPAM
     Indication: ANXIETY
     Route: 048
     Dates: start: 20090101, end: 20150101

REACTIONS (5)
  - Panic attack [None]
  - Impaired work ability [None]
  - Suicidal ideation [None]
  - Overdose [None]
  - Bedridden [None]

NARRATIVE: CASE EVENT DATE: 20121121
